FAERS Safety Report 12084232 (Version 1)
Quarter: 2016Q1

REPORT INFORMATION
  Report Type: Spontaneous
  Country: US (occurrence: None)
  Receive Date: 20160216
  Receipt Date: 20160216
  Transmission Date: 20160526
  Serious: Yes (Disabling, Other)
  Sender: FDA-Public Use
  Company Number: None

PATIENT
  Age: 69 Year
  Sex: Female
  Weight: 99.79 kg

DRUGS (7)
  1. OXYCODONE 20MG RHODES PHARMA [Suspect]
     Active Substance: OXYCODONE
     Indication: NEUROPATHY PERIPHERAL
     Dosage: 1 TABLET 6X/DAY TAKEN BY MOUTH
     Route: 048
     Dates: start: 20160122, end: 20160212
  2. CALCIUM [Concomitant]
     Active Substance: CALCIUM
  3. ONE A DAY VITAMINS FOR SENIORS [Concomitant]
  4. GABAPENTIN. [Concomitant]
     Active Substance: GABAPENTIN
  5. TZANIDINE [Concomitant]
  6. GABAPENTIN. [Concomitant]
     Active Substance: GABAPENTIN
  7. OXYCODONE 20MG RHODES PHARMA [Suspect]
     Active Substance: OXYCODONE
     Indication: ARTHRALGIA
     Dosage: 1 TABLET 6X/DAY TAKEN BY MOUTH
     Route: 048
     Dates: start: 20160122, end: 20160212

REACTIONS (6)
  - Drug ineffective [None]
  - Emotional distress [None]
  - Product counterfeit [None]
  - Product substitution issue [None]
  - Activities of daily living impaired [None]
  - Road traffic accident [None]

NARRATIVE: CASE EVENT DATE: 20160122
